FAERS Safety Report 9538389 (Version 1)
Quarter: 2013Q3

REPORT INFORMATION
  Report Type: Spontaneous
  Country: US (occurrence: US)
  Receive Date: 20130920
  Receipt Date: 20130920
  Transmission Date: 20140515
  Serious: No
  Sender: FDA-Public Use
  Company Number: US-PFIZER INC-2013265982

PATIENT
  Age: 43 Year
  Sex: Male

DRUGS (6)
  1. CAVERJECT [Suspect]
     Dosage: 15 UG, UNK TITRATED TO 40 UG
     Dates: start: 201107
  2. CAVERJECT [Suspect]
     Dosage: 40 UG, UNK
  3. TRICOR [Concomitant]
     Indication: BLOOD CHOLESTEROL INCREASED
     Dosage: 48 MG, 1X/DAY
  4. LISINOPRIL [Concomitant]
     Indication: HYPERTENSION
     Dosage: 20 MG, 1X/DAY
  5. HYDROCHLOROTHIAZIDE [Concomitant]
     Indication: HYPERTENSION
     Dosage: 25 MG, 1X/DAY
  6. OXYCODONE [Concomitant]
     Indication: PAIN
     Dosage: 10 MG, 3X/DAY

REACTIONS (1)
  - Drug ineffective [Unknown]
